FAERS Safety Report 19179653 (Version 1)
Quarter: 2021Q2

REPORT INFORMATION
  Report Type: Spontaneous
  Country: GB (occurrence: GB)
  Receive Date: 20210426
  Receipt Date: 20210426
  Transmission Date: 20210717
  Serious: Yes (Disabling)
  Sender: FDA-Public Use
  Company Number: GB-ACCORD-223173

PATIENT
  Age: 85 Year
  Sex: Male
  Weight: 76 kg

DRUGS (7)
  1. BISOPROLOL [Concomitant]
     Active Substance: BISOPROLOL
     Dates: start: 20200522
  2. CODEINE PHOSPHATE/PARACETAMOL [Concomitant]
     Active Substance: ACETAMINOPHEN\CODEINE PHOSPHATE
     Dosage: TAKE 1 OR 2 4 TIMES/DAY WHEN REQUIRED FOR THE
     Dates: start: 20200716
  3. PIOGLITAZONE/PIOGLITAZONE HYDROCHLORIDE [Suspect]
     Active Substance: PIOGLITAZONE HYDROCHLORIDE
     Indication: PRODUCT USED FOR UNKNOWN INDICATION
     Dates: start: 20210315, end: 20210324
  4. ACETYLSALICYLIC ACID [Concomitant]
     Active Substance: ASPIRIN
     Dosage: AD
     Dates: start: 20200522
  5. LACTULOSE. [Concomitant]
     Active Substance: LACTULOSE
     Dates: start: 20200716
  6. GLICLAZIDE [Concomitant]
     Active Substance: GLICLAZIDE
     Dates: start: 20200522
  7. SIMVASTATIN. [Concomitant]
     Active Substance: SIMVASTATIN
     Dosage: AT NIGHT
     Dates: start: 20200522

REACTIONS (2)
  - Malaise [Unknown]
  - Limb discomfort [Recovered/Resolved]

NARRATIVE: CASE EVENT DATE: 20210324
